FAERS Safety Report 4305485-7 (Version None)
Quarter: 2004Q1

REPORT INFORMATION
  Report Type: 
  Country: None (occurrence: None)
  Receive Date: 20040226
  Receipt Date: 20031007
  Transmission Date: 20041129
  Serious: No
  Sender: FDA-Public Use
  Company Number: US-BRISTOL-MYERS SQUIBB COMPANY-12405460

PATIENT
  Age: 54 Year
  Sex: Male

DRUGS (4)
  1. ABILIFY [Suspect]
     Indication: ANXIETY
     Route: 048
     Dates: start: 20030903, end: 20030929
  2. ABILIFY [Suspect]
     Indication: AGORAPHOBIA
     Route: 048
     Dates: start: 20030903, end: 20030929
  3. VALIUM [Concomitant]
     Dates: start: 19940428
  4. PROZAC [Concomitant]
     Dates: start: 19940428

REACTIONS (2)
  - DROOLING [None]
  - DYSPHASIA [None]
